FAERS Safety Report 6907829-6 (Version None)
Quarter: 2010Q3

REPORT INFORMATION
  Report Type: 
  Country: None (occurrence: None)
  Receive Date: 20100805
  Receipt Date: 20100722
  Transmission Date: 20110219
  Serious: Yes (Other)
  Sender: FDA-Public Use
  Company Number: CH-CELGENEUS-151-20785-10072101

PATIENT
  Age: 61 Year
  Sex: Female

DRUGS (5)
  1. THALIDOMIDE [Suspect]
     Indication: TYPE 2 LEPRA REACTION
     Route: 048
  2. THALIDOMIDE [Suspect]
     Route: 048
  3. PREDNISONE [Concomitant]
     Indication: TYPE 2 LEPRA REACTION
     Route: 065
  4. PREDNISONE [Concomitant]
     Route: 065
  5. PREDNISONE [Concomitant]
     Route: 065

REACTIONS (5)
  - ABSCESS [None]
  - CELLULITIS [None]
  - DIZZINESS [None]
  - GASTROINTESTINAL DISORDER [None]
  - OSTEITIS [None]
